FAERS Safety Report 15186285 (Version 1)
Quarter: 2018Q3

REPORT INFORMATION
  Report Type: Report from Study
  Country: US (occurrence: US)
  Receive Date: 20180723
  Receipt Date: 20180723
  Transmission Date: 20181010
  Serious: No
  Sender: FDA-Public Use
  Company Number: US-EXELIXIS-CABO-17011526

PATIENT
  Sex: Female

DRUGS (2)
  1. CABOMETYX [Suspect]
     Active Substance: CABOZANTINIB S-MALATE
     Dosage: 60 MG, 4 DAYS ON AND 3 DAYS OFF
     Route: 048
     Dates: start: 20171021
  2. CABOMETYX [Suspect]
     Active Substance: CABOZANTINIB S-MALATE
     Indication: RENAL CANCER
     Dosage: 60 MG, QD
     Route: 048
     Dates: start: 20171021

REACTIONS (3)
  - Nausea [Not Recovered/Not Resolved]
  - Thyroiditis [Not Recovered/Not Resolved]
  - White blood cell count decreased [Not Recovered/Not Resolved]
